FAERS Safety Report 14939001 (Version 1)
Quarter: 2018Q2

REPORT INFORMATION
  Report Type: Spontaneous
  Country: GB (occurrence: GB)
  Receive Date: 20180525
  Receipt Date: 20180525
  Transmission Date: 20180711
  Serious: Yes (Other)
  Sender: FDA-Public Use
  Company Number: GB-MYLANLABS-2018M1033612

PATIENT
  Age: 30 Year
  Sex: Male

DRUGS (20)
  1. MOXONIDINE [Suspect]
     Active Substance: MOXONIDINE
     Indication: HYPERTENSION
     Dosage: UNK
     Route: 065
  2. FUROSEMIDE. [Suspect]
     Active Substance: FUROSEMIDE
     Indication: HYPERTENSION
     Dosage: 80 MG, QD
  3. NIFEDIPINE. [Suspect]
     Active Substance: NIFEDIPINE
     Indication: HYPERTENSION
     Dosage: 20 MG, TID
  4. CANDESARTAN. [Suspect]
     Active Substance: CANDESARTAN
     Indication: HYPERTENSION
     Dosage: 8 MG, BID
     Route: 048
  5. FUROSEMIDE. [Suspect]
     Active Substance: FUROSEMIDE
     Dosage: 80 MG, QD
  6. MESNA. [Suspect]
     Active Substance: MESNA
     Indication: PROPHYLAXIS
     Dosage: UNK
     Route: 065
  7. METOPROLOL. [Suspect]
     Active Substance: METOPROLOL
     Indication: HYPERTENSION
     Dosage: 100 MG, QD
     Route: 042
  8. MYCOPHENOLIC ACID. [Suspect]
     Active Substance: MYCOPHENOLIC ACID
     Indication: LUPUS NEPHRITIS
     Dosage: 1 G, BID
  9. METOLAZONE. [Suspect]
     Active Substance: METOLAZONE
     Indication: HYPERTENSION
     Dosage: 2.5 MG, QD
     Route: 048
  10. FUROSEMIDE. [Suspect]
     Active Substance: FUROSEMIDE
     Dosage: 200 MG, QD
  11. DOXAZOSIN [Suspect]
     Active Substance: DOXAZOSIN\DOXAZOSIN MESYLATE
     Indication: HYPERTENSION
     Dosage: 8 MG, BID
     Route: 048
  12. FUROSEMIDE. [Suspect]
     Active Substance: FUROSEMIDE
     Dosage: 120 MG, QD
     Route: 042
  13. ALISKIREN [Suspect]
     Active Substance: ALISKIREN
     Indication: HYPERTENSION
     Dosage: UNK
  14. WARFARIN [Concomitant]
     Active Substance: WARFARIN
     Indication: RENAL VEIN THROMBOSIS
     Dosage: UNK
  15. PHENYTOIN. [Concomitant]
     Active Substance: PHENYTOIN
     Indication: SEIZURE
     Dosage: UNK
     Route: 042
  16. LABETALOL [Suspect]
     Active Substance: LABETALOL\LABETALOL HYDROCHLORIDE
     Indication: HYPERTENSION
     Dosage: PER MINUTE
     Route: 042
  17. VALSARTAN. [Suspect]
     Active Substance: VALSARTAN
     Indication: HYPERTENSION
     Dosage: 160 MG, QD
  18. GLYCERYL TRINITRATE [Suspect]
     Active Substance: NITROGLYCERIN
     Indication: HYPERTENSION
     Dosage: PER MIN
     Route: 042
  19. RAMIPRIL. [Suspect]
     Active Substance: RAMIPRIL
     Indication: HYPERTENSION
     Dosage: 10 MG, QD
  20. PREDNISONE. [Concomitant]
     Active Substance: PREDNISONE
     Indication: SYSTEMIC LUPUS ERYTHEMATOSUS
     Dosage: 40 MG, QD

REACTIONS (4)
  - Drug intolerance [Unknown]
  - Headache [Unknown]
  - Hyperkalaemia [Unknown]
  - Gastrointestinal disorder [Unknown]
